FAERS Safety Report 12887590 (Version 3)
Quarter: 2016Q4

REPORT INFORMATION
  Report Type: Spontaneous
  Country: PL (occurrence: PL)
  Receive Date: 20161026
  Receipt Date: 20161206
  Transmission Date: 20170207
  Serious: Yes (Hospitalization, Other)
  Sender: FDA-Public Use
  Company Number: PL-ASTRAZENECA-2016SF08081

PATIENT
  Age: 25033 Day
  Sex: Female

DRUGS (14)
  1. MEROPENEM. [Suspect]
     Active Substance: MEROPENEM
     Indication: URINARY TRACT INFECTION
     Route: 042
  2. MILURIT [Concomitant]
     Active Substance: ALLOPURINOL
     Indication: ARTHRITIS
     Route: 048
     Dates: start: 20141121
  3. TRIFAS [Concomitant]
     Indication: HYPERTENSION
     Route: 048
     Dates: start: 20141121
  4. ATRAM [Concomitant]
     Indication: HYPERTENSION
     Route: 048
  5. POLOCARD [Concomitant]
     Active Substance: ASPIRIN
     Indication: ANGINA PECTORIS
     Route: 048
  6. SIOFOR [Concomitant]
     Active Substance: METFORMIN HYDROCHLORIDE
     Indication: DIABETES MELLITUS
     Dosage: 3000.0MG UNKNOWN
     Route: 048
     Dates: start: 20141121
  7. AXTIL [Concomitant]
     Indication: HYPERTENSION
     Route: 048
  8. CONTRACID [Concomitant]
     Indication: PROPHYLAXIS
     Route: 048
  9. KALIPOZ [Concomitant]
     Active Substance: POTASSIUM CHLORIDE
     Indication: SUPPLEMENTATION THERAPY
     Route: 048
     Dates: start: 20141121
  10. LANTUS [Concomitant]
     Active Substance: INSULIN GLARGINE
     Indication: DIABETES MELLITUS
     Dosage: 16.0IU UNKNOWN
     Route: 058
  11. DAPAGLIFLOZIN CODE NOT BROKEN [Suspect]
     Active Substance: DAPAGLIFLOZIN
     Indication: TYPE 2 DIABETES MELLITUS
     Route: 048
     Dates: start: 20140414
  12. APIDRA [Concomitant]
     Active Substance: INSULIN GLULISINE
     Indication: DIABETES MELLITUS
     Dosage: 32.0IU UNKNOWN
     Route: 058
  13. ZOCOR [Concomitant]
     Active Substance: SIMVASTATIN
     Indication: DIABETES MELLITUS
     Dosage: 20.0MG UNKNOWN
     Route: 048
  14. BETASERC [Concomitant]
     Active Substance: BETAHISTINE
     Indication: DIZZINESS
     Route: 048
     Dates: start: 20160530

REACTIONS (4)
  - Urinary tract infection [Recovered/Resolved]
  - Bladder neoplasm [Recovered/Resolved]
  - Atrial fibrillation [Not Recovered/Not Resolved]
  - Acute kidney injury [Recovered/Resolved]

NARRATIVE: CASE EVENT DATE: 20160707
